FAERS Safety Report 8318996 (Version 2)
Quarter: 2017Q1

REPORT INFORMATION
  Report Type: Spontaneous
  Country: FR (occurrence: FR)
  Receive Date: 20120103
  Receipt Date: 20170314
  Transmission Date: 20170429
  Serious: Yes (Hospitalization)
  Sender: FDA-Public Use
  Company Number: FR-PFIZER INC-2011315667

PATIENT
  Age: 22 Year
  Sex: Female

DRUGS (3)
  1. MIFEGYNE [Suspect]
     Active Substance: MIFEPRISTONE
     Indication: ABORTION INDUCED
     Dosage: 600 MG, 1X/DAY
     Route: 048
     Dates: start: 20111129, end: 20111129
  2. CYTOTEC [Suspect]
     Active Substance: MISOPROSTOL
     Indication: ABORTION INDUCED
     Dosage: 400 UG, 2X/DAY (400 ?G AT 08:30 AM AND 400 ?G AT 11:20 AM)
     Route: 048
     Dates: start: 20111201, end: 20111201
  3. CYTOTEC [Suspect]
     Active Substance: MISOPROSTOL
     Dosage: 800 UG, (2 TABLETS IN THE MORNING, 1 TABLET AT NOON AND 1 TABLET IN THE EVENING)
     Route: 048
     Dates: start: 20111202, end: 20111202

REACTIONS (1)
  - Drug ineffective for unapproved indication [Recovered/Resolved with Sequelae]

NARRATIVE: CASE EVENT DATE: 201112
